FAERS Safety Report 4338301-8 (Version None)
Quarter: 2004Q2

REPORT INFORMATION
  Report Type: 
  Country: None (occurrence: None)
  Receive Date: 20040413
  Receipt Date: 20040413
  Transmission Date: 20050107
  Serious: Yes (Other)
  Sender: FDA-Public Use
  Company Number: None

PATIENT
  Age: 64 Year
  Sex: Female
  Weight: 66.6788 kg

DRUGS (4)
  1. LEVAQUIN [Suspect]
     Indication: BRONCHITIS
     Dosage: 500 MG DAILY ORAL
     Route: 048
     Dates: start: 20040307, end: 20040321
  2. LEVAQUIN [Suspect]
     Indication: SINUSITIS
     Dosage: 500 MG DAILY ORAL
     Route: 048
     Dates: start: 20040307, end: 20040321
  3. TUSSIONEX [Concomitant]
  4. GUAIFENSIN WITH DEXTROMETHORPHAN [Concomitant]

REACTIONS (3)
  - INSOMNIA [None]
  - MUSCLE TIGHTNESS [None]
  - PAIN IN EXTREMITY [None]
